FAERS Safety Report 22699354 (Version 2)
Quarter: 2024Q2

REPORT INFORMATION
  Report Type: Report from Study
  Country: IL (occurrence: IL)
  Receive Date: 20230713
  Receipt Date: 20240606
  Transmission Date: 20240715
  Serious: Yes (Hospitalization)
  Sender: FDA-Public Use
  Company Number: IL-JNJFOC-20230716779

PATIENT
  Age: 30 Year
  Sex: Female

DRUGS (4)
  1. REMICADE [Suspect]
     Active Substance: INFLIXIMAB
     Indication: Crohn^s disease
     Route: 041
     Dates: start: 20161117
  2. AZATHIOPRINE [Suspect]
     Active Substance: AZATHIOPRINE
     Indication: Crohn^s disease
     Route: 065
     Dates: start: 20161107
  3. MESALAMINE [Concomitant]
     Active Substance: MESALAMINE
     Dates: start: 20161215, end: 20170126
  4. PREDNISONE [Concomitant]
     Active Substance: PREDNISONE
     Dates: start: 20180126, end: 20180425

REACTIONS (1)
  - Ovarian dysfunction [Recovering/Resolving]

NARRATIVE: CASE EVENT DATE: 20180429
